FAERS Safety Report 22146199 (Version 1)
Quarter: 2023Q1

REPORT INFORMATION
  Report Type: Spontaneous
  Country: MY (occurrence: MY)
  Receive Date: 20230328
  Receipt Date: 20230328
  Transmission Date: 20230417
  Serious: Yes (Death)
  Sender: FDA-Public Use
  Company Number: MY-JNJFOC-20230368607

PATIENT

DRUGS (2)
  1. OPSUMIT [Suspect]
     Active Substance: MACITENTAN
     Indication: Product used for unknown indication
     Route: 048
  2. UPTRAVI [Suspect]
     Active Substance: SELEXIPAG
     Indication: Product used for unknown indication
     Route: 048

REACTIONS (1)
  - Hypertensive crisis [Fatal]
